FAERS Safety Report 5475281-6 (Version None)
Quarter: 2007Q4

REPORT INFORMATION
  Report Type: 
  Country: None (occurrence: None)
  Receive Date: 20071002
  Receipt Date: 20070927
  Transmission Date: 20080405
  Serious: Yes (Other)
  Sender: FDA-Public Use
  Company Number: US-MERCK-0707USA01969

PATIENT
  Age: 57 Year
  Sex: Male

DRUGS (6)
  1. SINGULAIR [Suspect]
     Indication: HYPERSENSITIVITY
     Route: 048
     Dates: start: 20070605, end: 20070101
  2. COUGH, COLD, AND FLU THERAPIES (UNSPECIFIED) [Concomitant]
     Route: 065
  3. PREDNISONE [Concomitant]
     Indication: COUGH
     Route: 065
     Dates: start: 20070602
  4. ALBUTEROL [Concomitant]
  5. ZYRTEC [Concomitant]
     Indication: HYPERSENSITIVITY
     Route: 065
     Dates: start: 20070618
  6. FLUTICASONE PROPIONATE [Concomitant]
     Route: 065
     Dates: start: 20070605

REACTIONS (2)
  - ALLERGIC GRANULOMATOUS ANGIITIS [None]
  - SPLENOMEGALY [None]
